FAERS Safety Report 24848824 (Version 1)
Quarter: 2025Q1

REPORT INFORMATION
  Report Type: Other
  Country: CN (occurrence: CN)
  Receive Date: 20250116
  Receipt Date: 20250116
  Transmission Date: 20250408
  Serious: Yes (Other)
  Sender: QILU PHARMACEUTICAL (HAINAN) CO., LTD.
  Company Number: CN-QILU PHARMACEUTICAL (HAINAN) CO.  LTD.-QLH-000006-2025

PATIENT
  Age: 70 Year
  Sex: Male
  Weight: 55 kg

DRUGS (20)
  1. PEMETREXED DISODIUM [Suspect]
     Active Substance: PEMETREXED DISODIUM
     Indication: Lung adenocarcinoma
     Dosage: 0.8 G PER DAY
     Route: 041
     Dates: start: 20241120, end: 20241120
  2. PEMETREXED DISODIUM [Suspect]
     Active Substance: PEMETREXED DISODIUM
     Dosage: 0.6 G PER DAY
     Route: 041
     Dates: start: 20241217, end: 20241217
  3. PEMETREXED DISODIUM [Suspect]
     Active Substance: PEMETREXED DISODIUM
     Dosage: 0.8 G PER DAY
     Route: 041
     Dates: start: 20240805, end: 20240805
  4. PEMETREXED DISODIUM [Suspect]
     Active Substance: PEMETREXED DISODIUM
     Dosage: 0.8 G PER DAY
     Route: 041
     Dates: start: 20240913, end: 20240913
  5. PEMETREXED DISODIUM [Suspect]
     Active Substance: PEMETREXED DISODIUM
     Dosage: 0.8 G PER DAY
     Route: 041
     Dates: start: 20241017, end: 20241017
  6. CISPLATIN [Concomitant]
     Active Substance: CISPLATIN
     Dosage: 100 MG PER DAY
     Route: 041
     Dates: start: 20241120, end: 20241120
  7. CISPLATIN [Concomitant]
     Active Substance: CISPLATIN
     Dosage: 100 MG PER DAY
     Route: 041
     Dates: start: 20241217, end: 20241217
  8. CISPLATIN [Concomitant]
     Active Substance: CISPLATIN
     Dosage: 100 MG PER DAY
     Route: 041
     Dates: start: 20240805, end: 20240805
  9. CISPLATIN [Concomitant]
     Active Substance: CISPLATIN
     Dosage: 100 MG PER DAY
     Route: 041
     Dates: start: 20240913, end: 20240913
  10. CISPLATIN [Concomitant]
     Active Substance: CISPLATIN
     Dosage: 100 MG PER DAY
     Route: 041
     Dates: start: 20241017, end: 20241017
  11. SODIUM CHLORIDE [Concomitant]
     Active Substance: SODIUM CHLORIDE
     Route: 041
     Dates: start: 20240805, end: 20240805
  12. SODIUM CHLORIDE [Concomitant]
     Active Substance: SODIUM CHLORIDE
     Route: 041
     Dates: start: 20240805, end: 20240805
  13. SODIUM CHLORIDE [Concomitant]
     Active Substance: SODIUM CHLORIDE
     Route: 041
     Dates: start: 20240913, end: 20240913
  14. SODIUM CHLORIDE [Concomitant]
     Active Substance: SODIUM CHLORIDE
     Route: 041
     Dates: start: 20240913, end: 20240913
  15. SODIUM CHLORIDE [Concomitant]
     Active Substance: SODIUM CHLORIDE
     Route: 041
     Dates: start: 20241017, end: 20241017
  16. SODIUM CHLORIDE [Concomitant]
     Active Substance: SODIUM CHLORIDE
     Route: 041
     Dates: start: 20241017, end: 20241017
  17. SODIUM CHLORIDE [Concomitant]
     Active Substance: SODIUM CHLORIDE
     Route: 041
     Dates: start: 20241120, end: 20241120
  18. SODIUM CHLORIDE [Concomitant]
     Active Substance: SODIUM CHLORIDE
     Route: 041
     Dates: start: 20241120, end: 20241120
  19. SODIUM CHLORIDE [Concomitant]
     Active Substance: SODIUM CHLORIDE
     Route: 041
     Dates: start: 20241217, end: 20241217
  20. SODIUM CHLORIDE [Concomitant]
     Active Substance: SODIUM CHLORIDE
     Route: 041
     Dates: start: 20241217, end: 20241217

REACTIONS (3)
  - Atrial tachycardia [Unknown]
  - Extrasystoles [Unknown]
  - Heart rate variability decreased [Unknown]

NARRATIVE: CASE EVENT DATE: 20241217
